FAERS Safety Report 23980793 (Version 2)
Quarter: 2024Q3

REPORT INFORMATION
  Report Type: Spontaneous
  Country: JP (occurrence: JP)
  Receive Date: 20240617
  Receipt Date: 20240701
  Transmission Date: 20241016
  Serious: Yes (Life-Threatening, Hospitalization)
  Sender: TEVA
  Company Number: JP-TEVA-VS-3208951

PATIENT
  Age: 88 Year
  Sex: Male

DRUGS (3)
  1. FLUTICASONE [Suspect]
     Active Substance: FLUTICASONE
     Indication: Asthma
     Route: 065
  2. FLUTICASONE [Suspect]
     Active Substance: FLUTICASONE
  3. DUPILUMAB [Concomitant]
     Active Substance: DUPILUMAB
     Indication: Dermatitis atopic
     Dosage: PERIODIC
     Route: 065

REACTIONS (4)
  - Adrenal insufficiency [Recovering/Resolving]
  - Dysphagia [Recovering/Resolving]
  - Hyponatraemia [Recovered/Resolved]
  - Abdominal distension [Recovering/Resolving]
